FAERS Safety Report 6005247-9 (Version None)
Quarter: 2008Q4

REPORT INFORMATION
  Report Type: 
  Country: None (occurrence: None)
  Receive Date: 20081216
  Receipt Date: 20071226
  Transmission Date: 20090506
  Serious: No
  Sender: FDA-Public Use
  Company Number: US-AMGEN-KDL258211

PATIENT
  Sex: Male

DRUGS (2)
  1. ENBREL [Suspect]
     Indication: RHEUMATOID ARTHRITIS
     Route: 058
     Dates: start: 20040501
  2. ARAVA [Concomitant]
     Dates: start: 20070701

REACTIONS (3)
  - DRY EYE [None]
  - EYE PAIN [None]
  - PHOTOPHOBIA [None]
